FAERS Safety Report 5721569-0 (Version None)
Quarter: 2008Q2

REPORT INFORMATION
  Report Type: 
  Country: None (occurrence: None)
  Receive Date: 20080429
  Receipt Date: 20070116
  Transmission Date: 20081010
  Serious: No
  Sender: FDA-Public Use
  Company Number: US-ASTRAZENECA-2007UW00821

PATIENT
  Age: 60 Year
  Sex: Female
  Weight: 90.7 kg

DRUGS (22)
  1. NEXIUM [Suspect]
     Indication: GASTROOESOPHAGEAL REFLUX DISEASE
     Route: 048
     Dates: start: 20010101, end: 20020101
  2. NEXIUM [Suspect]
     Route: 048
     Dates: start: 20020101
  3. PULMICORT RESPULES [Concomitant]
  4. RANITIDINE [Concomitant]
  5. LASIX [Concomitant]
  6. ZYRTEC [Concomitant]
  7. ASPIRIN [Concomitant]
  8. GLIPIZIDE [Concomitant]
  9. COREG [Concomitant]
  10. M.V.I. [Concomitant]
  11. HYDROXYCHLOROQUINE SULFATE [Concomitant]
  12. PLAVIX [Concomitant]
  13. CELLCEPT [Concomitant]
  14. BACTRIM [Concomitant]
  15. NORVASC [Concomitant]
  16. QVAR 40 [Concomitant]
  17. XOPENEX [Concomitant]
  18. ALBUTEROL [Concomitant]
  19. FLONASE [Concomitant]
  20. ASTELIN [Concomitant]
     Dosage: TID
  21. SINGULAIR [Concomitant]
  22. ARANESP [Concomitant]

REACTIONS (1)
  - VOMITING PROJECTILE [None]
